FAERS Safety Report 5822745-9 (Version None)
Quarter: 2008Q3

REPORT INFORMATION
  Report Type: 
  Country: None (occurrence: None)
  Receive Date: 20080725
  Receipt Date: 20070918
  Transmission Date: 20090109
  Serious: No
  Sender: FDA-Public Use
  Company Number: US-AMGEN-KDL247414

PATIENT
  Sex: Male

DRUGS (3)
  1. PROCRIT [Suspect]
     Indication: PRE-EXISTING DISEASE
  2. PEGINTERFERON ALFA-2B [Concomitant]
  3. BLOOD CELLS, PACKED HUMAN [Concomitant]
     Dates: start: 20070701

REACTIONS (6)
  - CHILLS [None]
  - DIARRHOEA [None]
  - FAECES DISCOLOURED [None]
  - FEELING ABNORMAL [None]
  - GASTRIC HAEMORRHAGE [None]
  - HEADACHE [None]
